FAERS Safety Report 5049041-4 (Version None)
Quarter: 2006Q3

REPORT INFORMATION
  Report Type: 
  Country: None (occurrence: None)
  Receive Date: 20060712
  Receipt Date: 20060201
  Transmission Date: 20061208
  Serious: No
  Sender: FDA-Public Use
  Company Number: US-GLAXOSMITHKLINE-A0591788A

PATIENT
  Age: 5 Month
  Sex: Male

DRUGS (1)
  1. IMITREX [Suspect]
     Indication: DRUG USE FOR UNKNOWN INDICATION
     Dosage: 50MG SINGLE DOSE

REACTIONS (4)
  - DECREASED ACTIVITY [None]
  - DRUG EXPOSURE VIA BREAST MILK [None]
  - PERSONALITY CHANGE [None]
  - STARING [None]
